FAERS Safety Report 5420628-X (Version None)
Quarter: 2007Q3

REPORT INFORMATION
  Report Type: 
  Country: None (occurrence: None)
  Receive Date: 20070821
  Receipt Date: 20070812
  Transmission Date: 20080115
  Serious: Yes (Hospitalization, Disabling, Other)
  Sender: FDA-Public Use
  Company Number: PHHO2007NO05547

PATIENT
  Age: 60 Year
  Sex: Male

DRUGS (1)
  1. VEA489 VS VAH631 VS VAA489 VS HCTZ/AMLOD [Suspect]
     Indication: HYPERTENSION
     Dosage: DOUBLE BLIND
     Dates: start: 20070319, end: 20070329

REACTIONS (5)
  - GASTROENTERITIS [None]
  - HYPOTENSION [None]
  - RESPIRATORY ARREST [None]
  - SYNCOPE [None]
  - VOMITING [None]
